FAERS Safety Report 18467559 (Version 2)
Quarter: 2021Q1

REPORT INFORMATION
  Report Type: Spontaneous
  Country: US (occurrence: US)
  Receive Date: 20201105
  Receipt Date: 20210128
  Transmission Date: 20210419
  Serious: No
  Sender: FDA-Public Use
  Company Number: US-EYEPOINT PHARMACEUTICALS, INC.-US-EYP-20-00363

PATIENT
  Age: 56 Year
  Sex: Female

DRUGS (2)
  1. OZURDEX [Concomitant]
     Active Substance: DEXAMETHASONE
     Indication: PROPHYLAXIS
     Route: 031
     Dates: end: 202001
  2. YUTIQ [Suspect]
     Active Substance: FLUOCINOLONE ACETONIDE
     Indication: UVEITIS
     Route: 031
     Dates: start: 20200402, end: 20200402

REACTIONS (2)
  - Device dislocation [Recovered/Resolved]
  - Medical device removal [Unknown]

NARRATIVE: CASE EVENT DATE: 20200806
